FAERS Safety Report 7870794-1 (Version None)
Quarter: 2011Q4

REPORT INFORMATION
  Report Type: 
  Country: None (occurrence: None)
  Receive Date: 20111029
  Receipt Date: 20110221
  Transmission Date: 20120403
  Serious: No
  Sender: FDA-Public Use
  Company Number: US-AMGEN-USASP2011010122

PATIENT
  Age: 70 Year
  Sex: Female

DRUGS (3)
  1. ENBREL [Suspect]
     Dates: start: 20050101
  2. ENBREL [Suspect]
     Indication: RHEUMATOID ARTHRITIS
     Dosage: 25 MG, 2 TIMES/WK
     Dates: start: 20050101
  3. TREXALL [Concomitant]
     Dosage: 6 MG, QWK
     Dates: start: 20050101

REACTIONS (6)
  - RHEUMATOID ARTHRITIS [None]
  - JOINT DESTRUCTION [None]
  - ARTHRALGIA [None]
  - ROAD TRAFFIC ACCIDENT [None]
  - PAIN [None]
  - BACK PAIN [None]
